FAERS Safety Report 4421665-4 (Version None)
Quarter: 2004Q3

REPORT INFORMATION
  Report Type: 
  Country: None (occurrence: None)
  Receive Date: 20040809
  Receipt Date: 20040809
  Transmission Date: 20050211
  Serious: Yes (Life-Threatening)
  Sender: FDA-Public Use
  Company Number: None

PATIENT
  Sex: Male
  Weight: 78 kg

DRUGS (1)
  1. SILVA SORB [Suspect]
     Indication: TOXIC EPIDERMAL NECROLYSIS
     Dosage: 1 APPLICATION DAILY
     Dates: start: 20040728, end: 20040730

REACTIONS (1)
  - WHITE BLOOD CELL COUNT DECREASED [None]
